FAERS Safety Report 20956539 (Version 1)
Quarter: 2022Q2

REPORT INFORMATION
  Report Type: Spontaneous
  Country: US (occurrence: US)
  Receive Date: 20220614
  Receipt Date: 20220614
  Transmission Date: 20220720
  Serious: No
  Sender: FDA-Public Use
  Company Number: US-PFM-2020-01660

PATIENT
  Age: 8 Year
  Sex: Male
  Weight: 34 kg

DRUGS (8)
  1. PROPRANOLOL [Suspect]
     Active Substance: PROPRANOLOL HYDROCHLORIDE
     Indication: Tachycardia
     Dosage: 5 MG, QID (4/DAY), EVERY 6 HOURS
     Route: 050
  2. PROPRANOLOL [Suspect]
     Active Substance: PROPRANOLOL HYDROCHLORIDE
     Indication: Hypertension
     Dosage: 10 MG, TID (3/DAY), EVERY 8 HOURS
     Route: 050
  3. PROPRANOLOL [Suspect]
     Active Substance: PROPRANOLOL HYDROCHLORIDE
     Indication: Off label use
     Dosage: 5 MG, TID (3/DAY), EVERY 8 HOURS
     Route: 048
  4. PROPRANOLOL [Suspect]
     Active Substance: PROPRANOLOL HYDROCHLORIDE
     Dosage: 5 MG, BID (2/DAY), EVERY 12 HOURS
     Route: 048
  5. LEVETIRACETAM [Concomitant]
     Active Substance: LEVETIRACETAM
     Indication: Seizure prophylaxis
     Dosage: 250 MG, BID (2/DAY), EVERY 12 HOURS
     Route: 042
  6. ACETAMINOPHEN [Concomitant]
     Active Substance: ACETAMINOPHEN
     Indication: Body temperature fluctuation
     Dosage: , EVERY 6 HOURS325 MG, QID (4/DAY)
     Route: 050
  7. DEXMEDETOMIDINE [Concomitant]
     Active Substance: DEXMEDETOMIDINE
     Indication: Sedation
     Dosage: 0.2 TO 0.7 MCG/KG/H
     Route: 042
  8. CLONIDINE [Concomitant]
     Active Substance: CLONIDINE
     Indication: Sedation
     Dosage: 0.1 MG, TID (3/DAY), EVERY 8 HOURS
     Route: 050

REACTIONS (4)
  - Off label use [Unknown]
  - Product use in unapproved indication [Unknown]
  - Product administered to patient of inappropriate age [Unknown]
  - Inappropriate schedule of product administration [Unknown]
